FAERS Safety Report 13620292 (Version 1)
Quarter: 2017Q2

REPORT INFORMATION
  Report Type: Spontaneous
  Country: US (occurrence: US)
  Receive Date: 20170607
  Receipt Date: 20170607
  Transmission Date: 20170830
  Serious: Yes (Hospitalization)
  Sender: FDA-Public Use
  Company Number: None

PATIENT
  Age: 88 Year
  Sex: Male
  Weight: 81.6 kg

DRUGS (2)
  1. METRONIDAZOLE. [Suspect]
     Active Substance: METRONIDAZOLE
     Indication: OSTEOMYELITIS
     Route: 048
     Dates: start: 20170406, end: 20170414
  2. CEFEPIME [Suspect]
     Active Substance: CEFEPIME HYDROCHLORIDE
     Indication: OSTEOMYELITIS
     Route: 042
     Dates: start: 20170406, end: 20170414

REACTIONS (6)
  - Metabolic encephalopathy [None]
  - Mental status changes [None]
  - Neurotoxicity [None]
  - Dysarthria [None]
  - Leukocytosis [None]
  - Myoclonus [None]

NARRATIVE: CASE EVENT DATE: 20170411
